FAERS Safety Report 9345028 (Version 1)
Quarter: 2013Q2

REPORT INFORMATION
  Report Type: Spontaneous
  Country: CN (occurrence: CN)
  Receive Date: 20130612
  Receipt Date: 20130612
  Transmission Date: 20140414
  Serious: Yes (Hospitalization)
  Sender: FDA-Public Use
  Company Number: CN-JNJFOC-20130606498

PATIENT
  Sex: Male

DRUGS (2)
  1. MOTRIN SUSPENSION [Suspect]
     Route: 048
  2. MOTRIN SUSPENSION [Suspect]
     Indication: PRODUCT USED FOR UNKNOWN INDICATION
     Route: 048

REACTIONS (2)
  - Acute tonsillitis [Unknown]
  - Urticaria [Recovered/Resolved]
